FAERS Safety Report 19044495 (Version 1)
Quarter: 2021Q1

REPORT INFORMATION
  Report Type: Spontaneous
  Country: IL (occurrence: IL)
  Receive Date: 20210323
  Receipt Date: 20210323
  Transmission Date: 20210420
  Serious: Yes (Disabling)
  Sender: FDA-Public Use
  Company Number: IL-ORGANON-O2103ISR002084

PATIENT
  Sex: Male

DRUGS (1)
  1. PROPECIA [Suspect]
     Active Substance: FINASTERIDE
     Dosage: UNK
     Route: 048
     Dates: start: 202009

REACTIONS (6)
  - Housebound [Unknown]
  - Job dissatisfaction [Unknown]
  - Partner stress [Unknown]
  - Depression [Unknown]
  - Social anxiety disorder [Unknown]
  - Malaise [Unknown]

NARRATIVE: CASE EVENT DATE: 202009
